FAERS Safety Report 4836438-8 (Version None)
Quarter: 2005Q4

REPORT INFORMATION
  Report Type: 
  Country: None (occurrence: None)
  Receive Date: 20051118
  Receipt Date: 20051108
  Transmission Date: 20060501
  Serious: Yes (Hospitalization, Other)
  Sender: FDA-Public Use
  Company Number: HQWYE876808MAR05

PATIENT
  Age: 25 Year
  Sex: Male

DRUGS (9)
  1. RAPAMUNE [Suspect]
     Indication: PROPHYLAXIS AGAINST TRANSPLANT REJECTION
     Dosage: SEE IMAGE
     Route: 048
     Dates: start: 20041203, end: 20050214
  2. RAPAMUNE [Suspect]
     Indication: PROPHYLAXIS AGAINST TRANSPLANT REJECTION
     Dosage: SEE IMAGE
     Route: 048
     Dates: start: 20050215
  3. RAPAMUNE [Suspect]
  4. ATENOLOL [Concomitant]
  5. NIFEDIPINE [Concomitant]
  6. RANITIDINE [Concomitant]
  7. BACTRIM [Concomitant]
  8. PREDNISONE [Concomitant]
  9. CYCLOSPORINE [Concomitant]

REACTIONS (2)
  - BLOOD CREATININE INCREASED [None]
  - KIDNEY TRANSPLANT REJECTION [None]
